FAERS Safety Report 18842582 (Version 3)
Quarter: 2021Q2

REPORT INFORMATION
  Report Type: Spontaneous
  Country: DE (occurrence: DE)
  Receive Date: 20210204
  Receipt Date: 20210415
  Transmission Date: 20210717
  Serious: Yes (Death, Life-Threatening, Hospitalization)
  Sender: FDA-Public Use
  Company Number: DE-JNJFOC-20210202864

PATIENT
  Age: 6 Decade
  Sex: Male
  Weight: 104 kg

DRUGS (1)
  1. STELARA [Suspect]
     Active Substance: USTEKINUMAB
     Indication: CROHN^S DISEASE
     Route: 058
     Dates: start: 20201120

REACTIONS (1)
  - SARS-CoV-2 test positive [Fatal]

NARRATIVE: CASE EVENT DATE: 20201215
